FAERS Safety Report 8179793-6 (Version None)
Quarter: 2012Q1

REPORT INFORMATION
  Report Type: 
  Country: None (occurrence: None)
  Receive Date: 20120302
  Receipt Date: 20120224
  Transmission Date: 20120608
  Serious: Yes (Death)
  Sender: FDA-Public Use
  Company Number: US-JNJFOC-20110804996

PATIENT
  Sex: Male
  Weight: 54.89 kg

DRUGS (7)
  1. MOTRIN [Concomitant]
  2. CONCENTRATED TYLENOL INFANT DROPS [Suspect]
     Indication: PYREXIA
     Dosage: Q 4-6 H
     Route: 065
     Dates: start: 20090722
  3. AMOXICILLIN [Concomitant]
  4. PROVENTIL [Concomitant]
  5. GUAIFENESIN [Concomitant]
  6. ZITHROMAX [Concomitant]
  7. CONCENTRATED TYLENOL INFANT DROPS [Suspect]
     Route: 065

REACTIONS (4)
  - ACUTE RESPIRATORY DISTRESS SYNDROME [None]
  - PRODUCT QUALITY ISSUE [None]
  - PNEUMONIA [None]
  - MULTI-ORGAN FAILURE [None]
